FAERS Safety Report 10305102 (Version 1)
Quarter: 2014Q3

REPORT INFORMATION
  Report Type: Spontaneous
  Country: US (occurrence: None)
  Receive Date: 20140711
  Receipt Date: 20140711
  Transmission Date: 20150326
  Serious: No
  Sender: FDA-Public Use
  Company Number: None

PATIENT
  Age: 82 Year
  Sex: Female
  Weight: 68.04 kg

DRUGS (14)
  1. PROTONIX TABS [Concomitant]
  2. CRANBERRY TABS [Concomitant]
  3. ASPIRIN. [Concomitant]
     Active Substance: ASPIRIN
  4. CIPROFLOXACIN HCI 250MG TAB [Suspect]
     Active Substance: CIPROFLOXACIN HYDROCHLORIDE
     Indication: URINARY TRACT INFECTION
     Dosage: 250 MG PER TAB, 1 TABLET, 1 EVERY 12 HRS, BY MOUTH
     Route: 048
     Dates: start: 20140211, end: 20140220
  5. OMEGA Q PLUS [Concomitant]
  6. RANITIDINE [Concomitant]
     Active Substance: RANITIDINE\RANITIDINE HYDROCHLORIDE
  7. SUN CHLORELLA [Concomitant]
     Active Substance: DIETARY SUPPLEMENT
  8. SYNTHROID [Concomitant]
     Active Substance: LEVOTHYROXINE SODIUM
  9. NIACIN. [Concomitant]
     Active Substance: NIACIN
  10. VITAMIN D [Concomitant]
     Active Substance: CHOLECALCIFEROL
  11. METANX TABS [Concomitant]
  12. VITAMINS [Concomitant]
     Active Substance: VITAMINS
  13. CA [Concomitant]
  14. MELOXICAM. [Concomitant]
     Active Substance: MELOXICAM

REACTIONS (4)
  - Arthralgia [None]
  - Paraesthesia [None]
  - Musculoskeletal pain [None]
  - Pain [None]
